FAERS Safety Report 4945103-8 (Version None)
Quarter: 2006Q1

REPORT INFORMATION
  Report Type: 
  Country: None (occurrence: None)
  Receive Date: 20060314
  Receipt Date: 20060314
  Transmission Date: 20060701
  Serious: Yes (Other)
  Sender: FDA-Public Use
  Company Number: None

PATIENT
  Sex: Female
  Weight: 63.05 kg

DRUGS (2)
  1. LASIX [Suspect]
     Indication: CARDIAC FAILURE CONGESTIVE
  2. LASIX [Suspect]
     Indication: HYPERTENSION

REACTIONS (1)
  - HEPATIC ENZYME INCREASED [None]
